FAERS Safety Report 9509331 (Version 2)
Quarter: 2013Q3

REPORT INFORMATION
  Report Type: Spontaneous
  Country: US (occurrence: US)
  Receive Date: 20130909
  Receipt Date: 20130909
  Transmission Date: 20140515
  Serious: No
  Sender: FDA-Public Use
  Company Number: US-BRISTOL-MYERS SQUIBB COMPANY-18999920

PATIENT
  Age: 21 Year
  Sex: Male
  Weight: 57.59 kg

DRUGS (1)
  1. ABILIFY TABS 30 MG [Suspect]
     Indication: BIPOLAR DISORDER
     Dosage: NO OF DOSES-3
     Dates: start: 200907

REACTIONS (2)
  - Trismus [Unknown]
  - Joint contracture [Unknown]
